FAERS Safety Report 25391022 (Version 1)
Quarter: 2025Q2

REPORT INFORMATION
  Report Type: Spontaneous
  Country: US (occurrence: US)
  Receive Date: 20250603
  Receipt Date: 20250603
  Transmission Date: 20250716
  Serious: No
  Sender: DENDREON PHARMACEUTICALS LLC
  Company Number: US-DENDREON PHARMACEUTICAL LLC-2024DEN000128

PATIENT

DRUGS (4)
  1. PROVENGE [Suspect]
     Active Substance: SIPULEUCEL-T
     Indication: Prostate cancer metastatic
     Route: 042
     Dates: start: 20240506, end: 20240506
  2. PROVENGE [Suspect]
     Active Substance: SIPULEUCEL-T
     Route: 042
     Dates: start: 20240513, end: 20240513
  3. HEPARIN [Suspect]
     Active Substance: HEPARIN SODIUM
     Indication: Catheter management
     Route: 042
     Dates: start: 20240503, end: 20240503
  4. HEPARIN [Suspect]
     Active Substance: HEPARIN SODIUM
     Route: 042
     Dates: start: 20240510, end: 20240510

REACTIONS (4)
  - Asthenia [Recovered/Resolved]
  - Fall [Recovering/Resolving]
  - Limb injury [Recovering/Resolving]
  - Expired product administered [Recovered/Resolved]

NARRATIVE: CASE EVENT DATE: 20240510
